FAERS Safety Report 20984247 (Version 2)
Quarter: 2022Q3

REPORT INFORMATION
  Report Type: Report from Study
  Country: US (occurrence: US)
  Receive Date: 20220621
  Receipt Date: 20220706
  Transmission Date: 20221027
  Serious: No
  Sender: FDA-Public Use
  Company Number: US-BRISTOL-MYERS SQUIBB COMPANY-2022-053849

PATIENT
  Age: 88 Year
  Sex: Male

DRUGS (3)
  1. LENALIDOMIDE [Suspect]
     Active Substance: LENALIDOMIDE
     Indication: Non-Hodgkin^s lymphoma
     Dosage: FREQ : ONCE A DAY FOR 21 DAYS, THEN 7 DAYS OFF
     Route: 048
     Dates: start: 20220510, end: 20220531
  2. LENALIDOMIDE [Suspect]
     Active Substance: LENALIDOMIDE
     Indication: Diffuse large B-cell lymphoma
  3. MONJUVI [Concomitant]
     Active Substance: TAFASITAMAB-CXIX
     Indication: Product used for unknown indication
     Route: 065

REACTIONS (6)
  - Rash [Unknown]
  - Night sweats [Unknown]
  - Pollakiuria [Unknown]
  - Fatigue [Unknown]
  - Dysuria [Unknown]
  - Bladder discomfort [Unknown]

NARRATIVE: CASE EVENT DATE: 20220101
